FAERS Safety Report 10183169 (Version 1)
Quarter: 2014Q2

REPORT INFORMATION
  Report Type: Spontaneous
  Country: GB (occurrence: None)
  Receive Date: 20140516
  Receipt Date: 20140516
  Transmission Date: 20141212
  Serious: Yes (Hospitalization)
  Sender: FDA-Public Use
  Company Number: AUR-APL-2014-05551

PATIENT
  Age: 83 Year
  Sex: 0

DRUGS (2)
  1. DONEPEZIL (DONEPEZIL) [Suspect]
     Indication: DEMENTIA ALZHEIMER^S TYPE
     Route: 048
     Dates: start: 20140415, end: 20140415
  2. ASPIRIN (ACETYSALIC ACID) [Concomitant]

REACTIONS (2)
  - Loss of consciousness [None]
  - Bradycardia [None]
